FAERS Safety Report 24983440 (Version 2)
Quarter: 2025Q1

REPORT INFORMATION
  Report Type: Spontaneous
  Country: CA (occurrence: CA)
  Receive Date: 20250219
  Receipt Date: 20250311
  Transmission Date: 20250409
  Serious: Yes (Other)
  Sender: INTERCEPT PHARMACEUTICALS
  Company Number: CA-ADVANZ PHARMA-202408007129

PATIENT
  Age: 55 Year
  Sex: Female

DRUGS (3)
  1. OCALIVA [Suspect]
     Active Substance: OBETICHOLIC ACID
     Indication: Primary biliary cholangitis
     Route: 048
     Dates: start: 20240823
  2. OCALIVA [Suspect]
     Active Substance: OBETICHOLIC ACID
     Route: 048
  3. URSODIOL [Concomitant]
     Active Substance: URSODIOL
     Dates: start: 2016

REACTIONS (4)
  - Coeliac disease [Unknown]
  - Nausea [Recovered/Resolved]
  - Headache [Recovered/Resolved]
  - Joint stiffness [Unknown]

NARRATIVE: CASE EVENT DATE: 20240823
